FAERS Safety Report 5373761-5 (Version None)
Quarter: 2007Q2

REPORT INFORMATION
  Report Type: 
  Country: None (occurrence: None)
  Receive Date: 20070628
  Receipt Date: 20070618
  Transmission Date: 20071010
  Serious: Yes (Other)
  Sender: FDA-Public Use
  Company Number: US-ELI_LILLY_AND_COMPANY-US200705005570

PATIENT
  Sex: Female

DRUGS (3)
  1. HUMALOG MIX 75/25 [Suspect]
     Indication: DIABETES MELLITUS
     Dosage: 10 U, EACH MORNING
  2. HUMALOG MIX 75/25 [Suspect]
     Dosage: 8 U, EACH EVENING
  3. COUMADIN [Concomitant]
     Indication: ANTICOAGULANT THERAPY
     Dosage: UNK, DAILY (1/D)

REACTIONS (3)
  - BLINDNESS [None]
  - EYE EXCISION [None]
  - INJECTION SITE HAEMORRHAGE [None]
